FAERS Safety Report 5804023-7 (Version None)
Quarter: 2008Q3

REPORT INFORMATION
  Report Type: 
  Country: None (occurrence: None)
  Receive Date: 20080703
  Receipt Date: 20080623
  Transmission Date: 20090109
  Serious: Yes (Other)
  Sender: FDA-Public Use
  Company Number: 235979J08USA

PATIENT
  Age: 34 Year
  Sex: Female

DRUGS (6)
  1. REBIF [Suspect]
     Indication: MULTIPLE SCLEROSIS
     Dosage: 44 MCG, 3 IN 1 WEEKS, SUBCUTANEOUS
     Route: 058
     Dates: start: 20080116, end: 20080622
  2. SINGULAIR (MONTELUKAST /01362601/) [Concomitant]
  3. ALBUTEROL (SALBUTAMOL /00139501/) [Concomitant]
  4. ALLEGRA-D (ALLEGRA-D /01367401/) [Concomitant]
  5. NASONEX [Concomitant]
  6. UNSPECIFIED OVER THE COUNTER MEDICATIONS(ALL OTHER THERAPEUTIC PRODUCT [Concomitant]

REACTIONS (1)
  - MENINGITIS VIRAL [None]
